FAERS Safety Report 5611489-4 (Version None)
Quarter: 2008Q1

REPORT INFORMATION
  Report Type: 
  Country: None (occurrence: None)
  Receive Date: 20080201
  Receipt Date: 20080121
  Transmission Date: 20080703
  Serious: Yes (Other)
  Sender: FDA-Public Use
  Company Number: US-PFIZER INC-2008006725

PATIENT
  Sex: Female
  Weight: 106.36 kg

DRUGS (9)
  1. LYRICA [Suspect]
     Indication: COCCYDYNIA
     Dates: start: 20070801, end: 20071201
  2. NEXIUM [Concomitant]
     Indication: GASTROOESOPHAGEAL REFLUX DISEASE
  3. PHENOBARB [Concomitant]
     Indication: CONVULSION
  4. TENORMIN [Concomitant]
     Indication: HYPERTENSION
  5. ADVIL LIQUI-GELS [Concomitant]
     Indication: ARTHRITIS
  6. TUMS [Concomitant]
  7. VITAMIN CAP [Concomitant]
  8. VITAMIN B-12 [Concomitant]
  9. FISH OIL [Concomitant]

REACTIONS (4)
  - DYSPNOEA [None]
  - LUNG NEOPLASM [None]
  - PNEUMONIA [None]
  - SKIN DISORDER [None]
